FAERS Safety Report 25644168 (Version 1)
Quarter: 2025Q3

REPORT INFORMATION
  Report Type: Spontaneous
  Country: US (occurrence: US)
  Receive Date: 20250805
  Receipt Date: 20250805
  Transmission Date: 20251021
  Serious: Yes (Death, Other)
  Sender: AMGEN
  Company Number: US-AMGEN-USASP2025151912

PATIENT
  Age: 47 Year
  Sex: Female

DRUGS (4)
  1. BEVACIZUMAB [Suspect]
     Active Substance: BEVACIZUMAB
     Indication: Ewing^s sarcoma
     Route: 065
  2. CISPLATIN [Concomitant]
     Active Substance: CISPLATIN
     Indication: Ewing^s sarcoma
  3. CARBOPLATIN [Concomitant]
     Active Substance: CARBOPLATIN
     Indication: Ewing^s sarcoma
  4. TAXOL [Concomitant]
     Active Substance: PACLITAXEL
     Indication: Ewing^s sarcoma

REACTIONS (4)
  - Death [Fatal]
  - Ewing^s sarcoma recurrent [Unknown]
  - Pelvic fibrosis [Unknown]
  - Off label use [Unknown]
